FAERS Safety Report 18972443 (Version 1)
Quarter: 2021Q1

REPORT INFORMATION
  Report Type: Spontaneous
  Country: US (occurrence: US)
  Receive Date: 20210304
  Receipt Date: 20210304
  Transmission Date: 20210420
  Serious: Yes (Hospitalization)
  Sender: FDA-Public Use
  Company Number: None

PATIENT
  Age: 60 Year
  Sex: Female

DRUGS (1)
  1. IBRANCE [Suspect]
     Active Substance: PALBOCICLIB
     Indication: BREAST CANCER
     Route: 048
     Dates: start: 20210212

REACTIONS (4)
  - Haematemesis [None]
  - Tumour haemorrhage [None]
  - Faeces discoloured [None]
  - Gastrointestinal stromal tumour [None]

NARRATIVE: CASE EVENT DATE: 20210225
